FAERS Safety Report 18132796 (Version 1)
Quarter: 2020Q3

REPORT INFORMATION
  Report Type: Spontaneous
  Country: HR (occurrence: HR)
  Receive Date: 20200811
  Receipt Date: 20200811
  Transmission Date: 20201103
  Serious: Yes (Hospitalization, Other)
  Sender: FDA-Public Use
  Company Number: HR-MICRO LABS LIMITED-ML2020-02326

PATIENT
  Age: 77 Year
  Sex: Male

DRUGS (9)
  1. CODEINE PHOSPHATE [Suspect]
     Active Substance: CODEINE PHOSPHATE
     Dosage: 30 MG TID
  2. VALSARTAN. [Suspect]
     Active Substance: VALSARTAN
     Dosage: 80 MG OD
  3. DABIGATRAN ETEXILATE [Suspect]
     Active Substance: DABIGATRAN ETEXILATE
     Dosage: 110 MG BID
  4. PAZOPANIB [Suspect]
     Active Substance: PAZOPANIB
     Indication: METASTATIC RENAL CELL CARCINOMA
     Dosage: 800 MG OD AT LEAST ONE HOUR BEFORE HIS MEAL
  5. VILDAGLIPTIN, METFORMIN [Suspect]
     Active Substance: METFORMIN\VILDAGLIPTIN
     Dosage: 50 MG/1000 MG BID
  6. LACIDIPINE [Suspect]
     Active Substance: LACIDIPINE
     Dosage: 4 MG OD
  7. ATORVASTATIN [Suspect]
     Active Substance: ATORVASTATIN
     Dosage: 20 MG OD
  8. LEVOTHYROXINE. [Concomitant]
     Active Substance: LEVOTHYROXINE
     Dosage: 50 UG WEEKDAYS AND 75 UG ON SATURDAY AND SUNDAY
  9. CARVEDILOL. [Suspect]
     Active Substance: CARVEDILOL
     Dosage: 6.25 MG OD

REACTIONS (4)
  - Hyperglycaemia [Recovered/Resolved]
  - Drug interaction [Recovered/Resolved]
  - Hyperbilirubinaemia [Recovered/Resolved]
  - Blood alkaline phosphatase increased [Recovered/Resolved]
